FAERS Safety Report 5481169-7 (Version None)
Quarter: 2007Q4

REPORT INFORMATION
  Report Type: 
  Country: None (occurrence: None)
  Receive Date: 20071010
  Receipt Date: 20071004
  Transmission Date: 20080405
  Serious: Yes (Death, Other)
  Sender: FDA-Public Use
  Company Number: PHEH2007US13200

PATIENT
  Sex: Male

DRUGS (1)
  1. ZOMETA [Suspect]

REACTIONS (3)
  - BONE NEOPLASM MALIGNANT [None]
  - DISEASE PROGRESSION [None]
  - METASTATIC NEOPLASM [None]
